FAERS Safety Report 6373373-0 (Version None)
Quarter: 2009Q3

REPORT INFORMATION
  Report Type: 
  Country: None (occurrence: None)
  Receive Date: 20090924
  Receipt Date: 20090331
  Transmission Date: 20100115
  Serious: No
  Sender: FDA-Public Use
  Company Number: US-ASTRAZENECA-2009UW08157

PATIENT
  Sex: Female
  Weight: 83.9 kg

DRUGS (1)
  1. SEROQUEL [Suspect]
     Indication: SCHIZOPHRENIA
     Dosage: 300 MG AT NIGHT AND 100 MG IN AM
     Route: 048
     Dates: start: 19990101, end: 20090101

REACTIONS (3)
  - DIZZINESS [None]
  - DRY MOUTH [None]
  - GAIT DISTURBANCE [None]
